FAERS Safety Report 8509646-2 (Version None)
Quarter: 2012Q3

REPORT INFORMATION
  Report Type: 
  Country: None (occurrence: None)
  Receive Date: 20120713
  Receipt Date: 20120703
  Transmission Date: 20120928
  Serious: Yes (Other)
  Sender: FDA-Public Use
  Company Number: US-ABBOTT-12P-163-0952944-00

PATIENT
  Sex: Male
  Weight: 90.8 kg

DRUGS (9)
  1. NIASPAN [Suspect]
  2. NIASPAN [Suspect]
  3. ASPIRIN [Concomitant]
     Indication: PRODUCT USED FOR UNKNOWN INDICATION
  4. NIASPAN [Suspect]
     Indication: HIGH DENSITY LIPOPROTEIN DECREASED
  5. LISINOPRIL [Concomitant]
     Indication: PRODUCT USED FOR UNKNOWN INDICATION
  6. INDAPAMIDE [Concomitant]
     Indication: PRODUCT USED FOR UNKNOWN INDICATION
  7. NIASPAN [Suspect]
  8. COREG [Concomitant]
     Indication: PRODUCT USED FOR UNKNOWN INDICATION
  9. CRESTOR [Concomitant]
     Indication: PRODUCT USED FOR UNKNOWN INDICATION

REACTIONS (3)
  - PRURITUS [None]
  - FLUSHING [None]
  - MYOCARDIAL INFARCTION [None]
